FAERS Safety Report 7553734-4 (Version None)
Quarter: 2011Q2

REPORT INFORMATION
  Report Type: 
  Country: None (occurrence: None)
  Receive Date: 20110614
  Receipt Date: 20110614
  Transmission Date: 20111010
  Serious: Yes (Other)
  Sender: FDA-Public Use
  Company Number: None

PATIENT
  Age: 12 Year
  Sex: Male
  Weight: 27.4 kg

DRUGS (7)
  1. MIN-HALER [Concomitant]
  2. SINGULAIR [Suspect]
     Indication: ASTHMA
     Dosage: 5MG DAILY PO
     Route: 048
  3. SINGULAIR [Suspect]
     Indication: RHINITIS ALLERGIC
     Dosage: 5MG DAILY PO
     Route: 048
  4. PREVACID [Concomitant]
  5. ALLEGRA [Concomitant]
  6. ADVAIR HFA [Concomitant]
  7. XOPENEX HFA [Concomitant]

REACTIONS (3)
  - NIGHTMARE [None]
  - MIDDLE INSOMNIA [None]
  - MOOD ALTERED [None]
